FAERS Safety Report 13604728 (Version 1)
Quarter: 2017Q2

REPORT INFORMATION
  Report Type: Spontaneous
  Country: US (occurrence: US)
  Receive Date: 20170602
  Receipt Date: 20170602
  Transmission Date: 20170830
  Serious: No
  Sender: FDA-Public Use
  Company Number: US-NOVEN PHARMACEUTICALS, INC.-US2016001953

PATIENT

DRUGS (20)
  1. DAYTRANA [Suspect]
     Active Substance: METHYLPHENIDATE
     Indication: CHRONIC FATIGUE SYNDROME
     Dosage: 30 MG, UNKNOWN
     Route: 062
     Dates: start: 2013, end: 2014
  2. BUPRENEX [Concomitant]
     Active Substance: BUPRENORPHINE HYDROCHLORIDE
     Indication: ARTHRITIS
  3. LUXIQ [Concomitant]
     Active Substance: BETAMETHASONE VALERATE
     Indication: LUPUS-LIKE SYNDROME
  4. VENTOLIN [Concomitant]
     Active Substance: ALBUTEROL SULFATE
     Indication: HYPERSENSITIVITY
  5. POTASSIUM [Concomitant]
     Active Substance: POTASSIUM
     Indication: LUPUS-LIKE SYNDROME
     Dosage: 30 U,FOUR TIMES A WEEK
     Route: 065
  6. DESOXIMETASONE. [Concomitant]
     Active Substance: DESOXIMETASONE
     Indication: LUPUS-LIKE SYNDROME
  7. SCOPOLAMINE HBR [Concomitant]
     Active Substance: SCOPOLAMINE
     Indication: NAUSEA
  8. SCOPOLAMINE HBR [Concomitant]
     Active Substance: SCOPOLAMINE
     Indication: LUPUS-LIKE SYNDROME
  9. BUPRENEX [Concomitant]
     Active Substance: BUPRENORPHINE HYDROCHLORIDE
     Indication: FIBROMYALGIA
  10. BUPRENEX [Concomitant]
     Active Substance: BUPRENORPHINE HYDROCHLORIDE
     Indication: LUPUS-LIKE SYNDROME
  11. VITAMIN D [Concomitant]
     Active Substance: CHOLECALCIFEROL
     Indication: VITAMIN D DEFICIENCY
  12. CELLCEPT [Concomitant]
     Active Substance: MYCOPHENOLATE MOFETIL\MYCOPHENOLATE MOFETIL HYDROCHLORIDE
     Indication: LUPUS-LIKE SYNDROME
  13. QNASL [Concomitant]
     Active Substance: BECLOMETHASONE DIPROPIONATE
     Indication: HYPERSENSITIVITY
  14. BENLYSTA [Concomitant]
     Active Substance: BELIMUMAB
     Indication: LUPUS-LIKE SYNDROME
  15. LEVOCETIRIZINE DIHYDROCHLORIDE. [Concomitant]
     Active Substance: LEVOCETIRIZINE DIHYDROCHLORIDE
     Indication: HYPERSENSITIVITY
  16. MEDROXYPROGESTERONE [Concomitant]
     Active Substance: MEDROXYPROGESTERONE
     Indication: ENDOMETRIOSIS
  17. SCOPOLAMINE HBR [Concomitant]
     Active Substance: SCOPOLAMINE
     Indication: IMPAIRED GASTRIC EMPTYING
  18. CLONIDINE. [Concomitant]
     Active Substance: CLONIDINE
     Indication: HYPERTENSION
  19. DAYTRANA [Suspect]
     Active Substance: METHYLPHENIDATE
     Dosage: UNK, UNKNOWN
     Route: 062
  20. PLAQUENIL [Concomitant]
     Active Substance: HYDROXYCHLOROQUINE SULFATE
     Indication: LUPUS-LIKE SYNDROME

REACTIONS (2)
  - Off label use [Unknown]
  - No adverse event [Unknown]

NARRATIVE: CASE EVENT DATE: 2013
